FAERS Safety Report 20152352 (Version 1)
Quarter: 2021Q4

REPORT INFORMATION
  Report Type: Spontaneous
  Country: CN (occurrence: CN)
  Receive Date: 20211206
  Receipt Date: 20211206
  Transmission Date: 20220303
  Serious: Yes (Hospitalization)
  Sender: FDA-Public Use
  Company Number: CN-BAXTER-2021BAX038124

PATIENT
  Age: 47 Year
  Sex: Female
  Weight: 41 kg

DRUGS (8)
  1. CYCLOPHOSPHAMIDE [Suspect]
     Active Substance: CYCLOPHOSPHAMIDE
     Indication: Breast neoplasm
     Dosage: 0.9% SODIUM CHLORIDE 500 ML + CYCLOPHOSPHAMIDE 830 MG
     Route: 041
     Dates: start: 20210927, end: 20210927
  2. CYCLOPHOSPHAMIDE [Suspect]
     Active Substance: CYCLOPHOSPHAMIDE
     Dosage: DOSE RE-INTRODUCED, 0.9% SODIUM CHLORIDE + CYCLOPHOSPHAMIDE
     Route: 041
  3. SODIUM CHLORIDE [Suspect]
     Active Substance: SODIUM CHLORIDE
     Indication: Medication dilution
     Dosage: CYCLOPHOSPHAMIDE 830 MG + 0.9% SODIUM CHLORIDE 500 ML
     Route: 041
     Dates: start: 20210927, end: 20210927
  4. SODIUM CHLORIDE [Suspect]
     Active Substance: SODIUM CHLORIDE
     Dosage: CYCLOPHOSPHAMIDE + 0.9% SODIUM CHLORIDE, DOSE REINTRODUCED
     Route: 041
  5. DEXTROSE [Suspect]
     Active Substance: DEXTROSE
     Indication: Medication dilution
     Dosage: DOXORUBICIN HYDROCHLORIDE LIPOSOME 50 MG + 5% GLUCOSE INJECTION 500 ML
     Route: 041
     Dates: start: 20210927, end: 20210927
  6. DEXTROSE [Suspect]
     Active Substance: DEXTROSE
     Dosage: DOXORUBICIN HYDROCHLORIDE LIPOSOME + 5% GLUCOSE INJECTION, DOSE RE-INTRODUCED
     Route: 041
  7. DOXORUBICIN HYDROCHLORIDE [Suspect]
     Active Substance: DOXORUBICIN HYDROCHLORIDE
     Indication: Breast neoplasm
     Dosage: DOXORUBICIN HYDROCHLORIDE LIPOSOME 50 MG + 5% GLUCOSE 500 ML
     Route: 041
     Dates: start: 20210927, end: 20210927
  8. DOXORUBICIN HYDROCHLORIDE [Suspect]
     Active Substance: DOXORUBICIN HYDROCHLORIDE
     Dosage: DOSE RE-INTRODUCED, DOXORUBICIN HYDROCHLORIDE LIPOSOME + 5% GLUCOSE
     Route: 041

REACTIONS (1)
  - Drug-induced liver injury [Recovering/Resolving]

NARRATIVE: CASE EVENT DATE: 20211028
